FAERS Safety Report 6055225-9 (Version None)
Quarter: 2009Q1

REPORT INFORMATION
  Report Type: 
  Country: None (occurrence: None)
  Receive Date: 20090122
  Receipt Date: 20090109
  Transmission Date: 20090719
  Serious: No
  Sender: FDA-Public Use
  Company Number: C-09-0006

PATIENT
  Age: 65 Year
  Sex: Female
  Weight: 89.8122 kg

DRUGS (8)
  1. HYDROCODONE AND HOMETROPINE SYRUP (MGP) [Suspect]
     Indication: COUGH
     Dosage: 1-2 TSP 3 TIMES DAILY
     Dates: start: 20090103
  2. HYDROCODONE AND HOMETROPINE SYRUP (MGP) [Suspect]
     Indication: RESPIRATORY TRACT INFECTION
     Dosage: 1-2 TSP 3 TIMES DAILY
     Dates: start: 20090103
  3. COREG [Concomitant]
  4. TRICOR [Concomitant]
  5. DYAZIDE [Concomitant]
  6. VYTORIN [Concomitant]
  7. CELEBREX [Concomitant]
  8. ASPIRIN [Concomitant]

REACTIONS (2)
  - HEADACHE [None]
  - PRURITUS GENERALISED [None]
